FAERS Safety Report 4728108-1 (Version None)
Quarter: 2005Q3

REPORT INFORMATION
  Report Type: 
  Country: None (occurrence: None)
  Receive Date: 20050729
  Receipt Date: 20050713
  Transmission Date: 20060218
  Serious: Yes (Hospitalization)
  Sender: FDA-Public Use
  Company Number: PHBS2005JP10018

PATIENT
  Age: 31 Year
  Sex: Female

DRUGS (1)
  1. TEGRETOL [Suspect]
     Route: 048

REACTIONS (2)
  - ISOLATED ADRENOCORTICOTROPIC HORMONE DEFICIENCY [None]
  - NEUROLEPTIC MALIGNANT SYNDROME [None]
